FAERS Safety Report 20410935 (Version 2)
Quarter: 2022Q1

REPORT INFORMATION
  Report Type: Report from Study
  Country: MX (occurrence: MX)
  Receive Date: 20220201
  Receipt Date: 20220206
  Transmission Date: 20220424
  Serious: Yes (Other)
  Sender: FDA-Public Use
  Company Number: MX-NOVARTISPH-NVSC2022MX019497

PATIENT
  Age: 72 Year
  Sex: Female

DRUGS (4)
  1. DIOVAN [Suspect]
     Active Substance: VALSARTAN
     Indication: Hypertension
     Dosage: 1 DOSAGE FORM, QD, (80MG), STARTED 14 YEARS AGO
     Route: 048
     Dates: end: 202104
  2. DIOVAN [Suspect]
     Active Substance: VALSARTAN
     Dosage: 2 DOSAGE FORM, QD
     Route: 065
     Dates: start: 202110, end: 202111
  3. METOPROLOL [Concomitant]
     Active Substance: METOPROLOL
     Indication: Hypertension
     Dosage: 1 DOSAGE FORM, QD, STARTED 4 MONTHS AGO
     Route: 048
  4. AMLODIPINE [Concomitant]
     Active Substance: AMLODIPINE BESYLATE
     Indication: Hypertension
     Dosage: 1 DOSAGE FORM, QD
     Route: 048

REACTIONS (9)
  - Hypertensive crisis [Not Recovered/Not Resolved]
  - Respiratory failure [Unknown]
  - Arrhythmia [Not Recovered/Not Resolved]
  - Diabetes mellitus [Unknown]
  - Breast cancer [Unknown]
  - Cardiac failure [Recovered/Resolved]
  - Arthropathy [Unknown]
  - Asthenia [Recovering/Resolving]
  - Inappropriate schedule of product administration [Unknown]

NARRATIVE: CASE EVENT DATE: 20210201
